FAERS Safety Report 6110251-6 (Version None)
Quarter: 2009Q1

REPORT INFORMATION
  Report Type: 
  Country: None (occurrence: None)
  Receive Date: 20090309
  Receipt Date: 20090309
  Transmission Date: 20090719
  Serious: Yes (Hospitalization)
  Sender: FDA-Public Use
  Company Number: None

PATIENT
  Sex: Female
  Weight: 64.4 kg

DRUGS (11)
  1. TYSABRI [Suspect]
  2. PREDNISONE TAB [Concomitant]
  3. MAXALT [Concomitant]
  4. FIORICET [Concomitant]
  5. PHENERGAN [Concomitant]
  6. PROZAC [Concomitant]
  7. AMBIEN CR [Concomitant]
  8. XANAX [Concomitant]
  9. SOMA [Concomitant]
  10. IBUPROFEN TABLETS [Concomitant]
  11. PROVIGIL [Concomitant]

REACTIONS (22)
  - ABDOMINAL PAIN [None]
  - ABDOMINAL PAIN LOWER [None]
  - ABDOMINAL PAIN UPPER [None]
  - ARTHRALGIA [None]
  - BACK PAIN [None]
  - CHILLS [None]
  - CONDITION AGGRAVATED [None]
  - CYANOSIS [None]
  - DIARRHOEA [None]
  - DIZZINESS [None]
  - DYSPNOEA [None]
  - FAECAL INCONTINENCE [None]
  - HYPOTENSION [None]
  - INFUSION RELATED REACTION [None]
  - MOVEMENT DISORDER [None]
  - MULTIPLE SCLEROSIS [None]
  - MYALGIA [None]
  - NAUSEA [None]
  - PYREXIA [None]
  - RESPIRATORY DISTRESS [None]
  - URINARY INCONTINENCE [None]
  - VOMITING [None]
